FAERS Safety Report 14129118 (Version 1)
Quarter: 2017Q4

REPORT INFORMATION
  Report Type: Spontaneous
  Country: US (occurrence: US)
  Receive Date: 20171026
  Receipt Date: 20171026
  Transmission Date: 20180321
  Serious: No
  Sender: FDA-Public Use
  Company Number: US-LUNDBECK-DKLU2028635

PATIENT
  Age: 78 Year
  Sex: Male

DRUGS (1)
  1. NORTHERA [Suspect]
     Active Substance: DROXIDOPA
     Indication: PRODUCT USED FOR UNKNOWN INDICATION
     Dosage: SCHEDULE C/TITRATION COMPLETE
     Route: 065
     Dates: start: 20170325

REACTIONS (4)
  - Blood pressure systolic increased [Unknown]
  - Hypotension [Unknown]
  - Drug ineffective [Unknown]
  - Skin ulcer [Unknown]

NARRATIVE: CASE EVENT DATE: 20170327
